FAERS Safety Report 23131470 (Version 1)
Quarter: 2023Q4

REPORT INFORMATION
  Report Type: Spontaneous
  Country: JP (occurrence: JP)
  Receive Date: 20231031
  Receipt Date: 20231031
  Transmission Date: 20240109
  Serious: Yes (Life-Threatening, Hospitalization)
  Sender: FDA-Public Use
  Company Number: JP-Eisai-202304093_LEN_P_1

PATIENT
  Age: 75 Year
  Sex: Female
  Weight: 37 kg

DRUGS (2)
  1. LENVIMA [Suspect]
     Active Substance: LENVATINIB
     Indication: Papillary thyroid cancer
     Dosage: UNKNOWN DOSE AND FREQUENCY
     Route: 048
     Dates: start: 20210702, end: 20210928
  2. NIVOLUMAB [Concomitant]
     Active Substance: NIVOLUMAB
     Indication: Papillary thyroid cancer
     Dosage: UNKNOWN DOSE AND FREQUENCY
     Route: 050
     Dates: start: 20210702, end: 20210928

REACTIONS (1)
  - Oesophageal fistula [Recovering/Resolving]
